FAERS Safety Report 14881497 (Version 5)
Quarter: 2018Q2

REPORT INFORMATION
  Report Type: Spontaneous
  Country: DE (occurrence: DE)
  Receive Date: 20180511
  Receipt Date: 20180608
  Transmission Date: 20180711
  Serious: Yes (Hospitalization, Other)
  Sender: FDA-Public Use
  Company Number: DE-PFIZER INC-2018187693

PATIENT
  Age: 21 Year
  Sex: Male

DRUGS (7)
  1. CABERGOLINE. [Suspect]
     Active Substance: CABERGOLINE
     Indication: PROLACTIN-PRODUCING PITUITARY TUMOUR
     Dosage: UNK
     Dates: start: 19981002, end: 19991007
  2. QUINAGOLIDE [Suspect]
     Active Substance: QUINAGOLIDE
     Indication: PROLACTIN-PRODUCING PITUITARY TUMOUR
     Dosage: UNK
     Dates: start: 19980903, end: 19990301
  3. TESTOSTERONE. [Concomitant]
     Active Substance: TESTOSTERONE
     Indication: HORMONE LEVEL ABNORMAL
     Dosage: UNK
     Route: 065
  4. HYDROCORTISONE. [Concomitant]
     Active Substance: HYDROCORTISONE
     Indication: HORMONE LEVEL ABNORMAL
     Dosage: UNK
     Route: 065
  5. CABERGOLINE. [Suspect]
     Active Substance: CABERGOLINE
     Dosage: 4 MG, QW
     Dates: start: 20011203
  6. QUINAGOLIDE [Suspect]
     Active Substance: QUINAGOLIDE
     Dosage: UNK
     Dates: start: 19990624, end: 20011203
  7. BROMOCRIPTINE [Suspect]
     Active Substance: BROMOCRIPTINE
     Indication: PROLACTIN-PRODUCING PITUITARY TUMOUR
     Dosage: 40 MG, UNK
     Route: 065

REACTIONS (3)
  - Borderline personality disorder [Recovered/Resolved]
  - Major depression [Recovering/Resolving]
  - Gambling disorder [Recovering/Resolving]

NARRATIVE: CASE EVENT DATE: 199802
